FAERS Safety Report 7643010-3 (Version None)
Quarter: 2011Q3

REPORT INFORMATION
  Report Type: 
  Country: None (occurrence: None)
  Receive Date: 20110728
  Receipt Date: 20110725
  Transmission Date: 20111222
  Serious: Yes (Hospitalization, Other)
  Sender: FDA-Public Use
  Company Number: US-MERCK-1107USA01832

PATIENT
  Age: 63 Year
  Sex: Female

DRUGS (4)
  1. VITAMINS (UNSPECIFIED) [Concomitant]
     Route: 065
  2. BONIVA [Suspect]
     Indication: OSTEOPOROSIS
     Route: 065
     Dates: start: 20060824, end: 20091012
  3. CALCIUM (UNSPECIFIED) [Concomitant]
     Route: 065
  4. FOSAMAX [Suspect]
     Indication: OSTEOPOROSIS
     Route: 048
     Dates: start: 20030309, end: 20060523

REACTIONS (8)
  - FEMUR FRACTURE [None]
  - RIB FRACTURE [None]
  - BLOOD CHOLESTEROL INCREASED [None]
  - ANGIOPATHY [None]
  - ANXIETY [None]
  - PAIN IN EXTREMITY [None]
  - VITAMIN D DEFICIENCY [None]
  - DEPRESSION [None]
